FAERS Safety Report 5563574-3 (Version None)
Quarter: 2007Q4

REPORT INFORMATION
  Report Type: 
  Country: None (occurrence: None)
  Receive Date: 20071217
  Receipt Date: 20070628
  Transmission Date: 20080405
  Serious: No
  Sender: FDA-Public Use
  Company Number: US-ASTRAZENECA-2007UW15398

PATIENT
  Age: 68 Year
  Sex: Male
  Weight: 99.8 kg

DRUGS (4)
  1. CRESTOR [Suspect]
     Indication: BLOOD CHOLESTEROL INCREASED
     Route: 048
     Dates: start: 20070429
  2. ANTIHYPERTENSIVE [Concomitant]
     Indication: HYPERTENSION
  3. DIABETES MEDICATION [Concomitant]
     Indication: DIABETES MELLITUS
  4. NIASPAN [Concomitant]

REACTIONS (2)
  - MYALGIA [None]
  - WEIGHT DECREASED [None]
